FAERS Safety Report 4539044-8 (Version None)
Quarter: 2004Q4

REPORT INFORMATION
  Report Type: 
  Country: None (occurrence: None)
  Receive Date: 20041222
  Receipt Date: 20041207
  Transmission Date: 20050328
  Serious: Yes (Other)
  Sender: FDA-Public Use
  Company Number: 2004-09-0394

PATIENT
  Age: 53 Year
  Sex: Male
  Weight: 145.151 kg

DRUGS (3)
  1. CLARITIN-D [Suspect]
     Indication: RESPIRATORY TRACT CONGESTION
     Dosage: 1 TABLET SD ORAL
     Route: 048
     Dates: start: 20040727, end: 20040813
  2. CLARITIN-D [Suspect]
     Indication: RHINORRHOEA
     Dosage: 1 TABLET SD ORAL
     Route: 048
     Dates: start: 20040727, end: 20040813
  3. TOPROL-XL [Concomitant]

REACTIONS (2)
  - ATRIAL FIBRILLATION [None]
  - CONDITION AGGRAVATED [None]
